FAERS Safety Report 4366965-1 (Version None)
Quarter: 2004Q2

REPORT INFORMATION
  Report Type: 
  Country: None (occurrence: None)
  Receive Date: 20040528
  Receipt Date: 20040430
  Transmission Date: 20050107
  Serious: Yes (Death, Other)
  Sender: FDA-Public Use
  Company Number: PHFR2004GB01952

PATIENT
  Age: 49 Year
  Sex: Male

DRUGS (1)
  1. CLOZARIL [Suspect]
     Indication: SCHIZOPHRENIA
     Route: 048
     Dates: start: 20030429

REACTIONS (3)
  - DECREASED IMMUNE RESPONSIVENESS [None]
  - DYSPNOEA [None]
  - PNEUMONIA [None]
